FAERS Safety Report 10233037 (Version 1)
Quarter: 2014Q2

REPORT INFORMATION
  Report Type: Spontaneous
  Country: US (occurrence: None)
  Receive Date: 20140611
  Receipt Date: 20140611
  Transmission Date: 20141212
  Serious: Yes (Other)
  Sender: FDA-Public Use
  Company Number: None

PATIENT
  Age: 59 Year
  Sex: Female

DRUGS (1)
  1. LEVOTHYROID [Suspect]
     Indication: HYPOTHYROIDISM

REACTIONS (2)
  - Hypersensitivity [None]
  - Dyspnoea [None]
